FAERS Safety Report 17282117 (Version 1)
Quarter: 2020Q1

REPORT INFORMATION
  Report Type: Spontaneous
  Country: ES (occurrence: ES)
  Receive Date: 20200117
  Receipt Date: 20200117
  Transmission Date: 20200409
  Serious: Yes (Hospitalization)
  Sender: FDA-Public Use
  Company Number: ES-TEVA-2020-ES-1167982

PATIENT
  Age: 57 Year
  Sex: Female

DRUGS (4)
  1. VINCRISTINA [Suspect]
     Active Substance: VINCRISTINE
     Route: 065
     Dates: start: 20190826
  2. CICLOSFOFAMIDA [Suspect]
     Active Substance: CYCLOPHOSPHAMIDE
     Dates: start: 20190826
  3. DOXORUBICINA (202A) [Suspect]
     Active Substance: DOXORUBICIN HYDROCHLORIDE
     Route: 065
     Dates: start: 20190826
  4. ETOPOSIDO (518A) [Suspect]
     Active Substance: ETOPOSIDE
     Route: 065
     Dates: start: 20190826

REACTIONS (1)
  - Febrile neutropenia [Recovered/Resolved]

NARRATIVE: CASE EVENT DATE: 20190908
